FAERS Safety Report 6729967-3 (Version None)
Quarter: 2010Q2

REPORT INFORMATION
  Report Type: 
  Country: None (occurrence: None)
  Receive Date: 20100513
  Receipt Date: 20100427
  Transmission Date: 20101027
  Serious: Yes (Hospitalization)
  Sender: FDA-Public Use
  Company Number: APP201000309

PATIENT
  Age: 57 Year
  Sex: Female

DRUGS (4)
  1. FLUOROURACIL [Suspect]
     Indication: ADENOCARCINOMA OF THE CERVIX
     Dosage: 1000 MG/M2
  2. FLUOROURACIL [Suspect]
     Indication: INTESTINAL ADENOCARCINOMA
     Dosage: 1000 MG/M2
  3. CISPLATIN [Suspect]
     Indication: ADENOCARCINOMA OF THE CERVIX
     Dosage: 75 MG/M2, 40 MG/M2
  4. CISPLATIN [Suspect]
     Indication: INTESTINAL ADENOCARCINOMA
     Dosage: 75 MG/M2, 40 MG/M2

REACTIONS (11)
  - DECREASED APPETITE [None]
  - DEHYDRATION [None]
  - ENCEPHALOPATHY [None]
  - HAEMOGLOBIN DECREASED [None]
  - MALNUTRITION [None]
  - MESENTERIC VEIN THROMBOSIS [None]
  - NUCLEAR MAGNETIC RESONANCE IMAGING BRAIN ABNORMAL [None]
  - REFUSAL OF TREATMENT BY PATIENT [None]
  - RENAL IMPAIRMENT [None]
  - URINARY INCONTINENCE [None]
  - VITAMIN B1 DECREASED [None]
